FAERS Safety Report 8640605 (Version 6)
Quarter: 2013Q2

REPORT INFORMATION
  Report Type: Spontaneous
  Country: JP (occurrence: JP)
  Receive Date: 20120628
  Receipt Date: 20130523
  Transmission Date: 20140414
  Serious: Yes (Death, Other)
  Sender: FDA-Public Use
  Company Number: PHHY2012JP055110

PATIENT
  Age: 61 Year
  Sex: Female

DRUGS (4)
  1. ZOMETA [Suspect]
     Indication: METASTASES TO BONE
     Dosage: UNK UKN, UNK
     Route: 041
     Dates: start: 200702, end: 200910
  2. ANALGESICS [Concomitant]
  3. FLOMOX [Concomitant]
     Dosage: UNK UKN, UNK
  4. TAXOTERE [Concomitant]
     Dosage: UNK UKN, UNK
     Dates: start: 200812, end: 201009

REACTIONS (14)
  - Neoplasm progression [Fatal]
  - Malignant neoplasm progression [Fatal]
  - Osteonecrosis of jaw [Not Recovered/Not Resolved]
  - Exposed bone in jaw [Unknown]
  - Tooth loss [Unknown]
  - Bacterial infection [Unknown]
  - Oral mucosal erythema [Unknown]
  - Swelling [Unknown]
  - Gingival infection [Unknown]
  - Pain [Unknown]
  - Osteomyelitis [Unknown]
  - Oral cavity fistula [Unknown]
  - Purulent discharge [Unknown]
  - Periodontitis [Unknown]
